FAERS Safety Report 4613540-7 (Version None)
Quarter: 2005Q1

REPORT INFORMATION
  Report Type: 
  Country: None (occurrence: None)
  Receive Date: 20050318
  Receipt Date: 20050318
  Transmission Date: 20050727
  Serious: Yes (Hospitalization)
  Sender: FDA-Public Use
  Company Number: None

PATIENT
  Age: 54 Year
  Sex: Male
  Weight: 77.1 kg

DRUGS (12)
  1. GATIFLOXACIN [Suspect]
     Indication: UPPER RESPIRATORY TRACT INFECTION
     Dosage: 400 MG DAILY
     Dates: start: 20041112, end: 20041114
  2. ASPIRIN [Concomitant]
  3. CITALOPRAM HYDROBROMIDE [Concomitant]
  4. DOCUSATE [Concomitant]
  5. LISINOPRIL [Concomitant]
  6. LORATADINE [Concomitant]
  7. M.V.I. [Concomitant]
  8. OXYBUTYNIN [Concomitant]
  9. OXYMETOLAZONE [Concomitant]
  10. PHENYTOIN [Concomitant]
  11. RISPERIDONE [Concomitant]
  12. SIMVASTATIN [Concomitant]

REACTIONS (2)
  - CONVULSION [None]
  - HYPOGLYCAEMIA [None]
